FAERS Safety Report 20918769 (Version 1)
Quarter: 2022Q2

REPORT INFORMATION
  Report Type: Report from Study
  Country: US (occurrence: US)
  Receive Date: 20220606
  Receipt Date: 20220606
  Transmission Date: 20220720
  Serious: Yes (Other)
  Sender: FDA-Public Use
  Company Number: US-CELGENE-USA-20220200155

PATIENT
  Age: 69 Year
  Sex: Female
  Weight: 118.39 kg

DRUGS (2)
  1. REVLIMID [Suspect]
     Active Substance: LENALIDOMIDE
     Indication: Plasma cell myeloma
     Dosage: 25 MILLIGRAM
     Route: 048
     Dates: start: 202110
  2. REVLIMID [Suspect]
     Active Substance: LENALIDOMIDE
     Dosage: 10 MILLIGRAM
     Route: 048
     Dates: start: 202111

REACTIONS (7)
  - Dizziness [Unknown]
  - Diarrhoea [Unknown]
  - Dizziness [Unknown]
  - Fall [Unknown]
  - Weight decreased [Unknown]
  - Neoplasm malignant [Unknown]
  - Anaemia [Unknown]
